FAERS Safety Report 14311361 (Version 1)
Quarter: 2017Q4

REPORT INFORMATION
  Report Type: Spontaneous
  Country: US (occurrence: US)
  Receive Date: 20171221
  Receipt Date: 20171221
  Transmission Date: 20180321
  Serious: No
  Sender: FDA-Public Use
  Company Number: US-NOVEN PHARMACEUTICALS, INC.-US2017001027

PATIENT

DRUGS (5)
  1. PROGESTERONE. [Concomitant]
     Active Substance: PROGESTERONE
     Dosage: UNK, BEDTIME
  2. MINIVELLE [Suspect]
     Active Substance: ESTRADIOL
     Indication: HOT FLUSH
     Dosage: 0.1 MG, UNKNOWN
     Route: 062
  3. LEVOTHYROXINE SODIUM. [Concomitant]
     Active Substance: LEVOTHYROXINE SODIUM
     Indication: THYROID DISORDER
     Dosage: VERY LOW DOSE
  4. VITAMINS [Concomitant]
     Active Substance: VITAMINS
  5. MINIVELLE [Suspect]
     Active Substance: ESTRADIOL
     Indication: MENOPAUSE
     Dosage: 0.1 MG, UNK
     Route: 062

REACTIONS (7)
  - Off label use [Unknown]
  - Application site pruritus [Not Recovered/Not Resolved]
  - Application site scab [Recovered/Resolved]
  - Application site rash [Unknown]
  - Application site pain [Unknown]
  - Application site erythema [Recovered/Resolved]
  - Application site reaction [Not Recovered/Not Resolved]
